FAERS Safety Report 16865400 (Version 1)
Quarter: 2019Q3

REPORT INFORMATION
  Report Type: Other
  Country: DE (occurrence: DE)
  Receive Date: 20190930
  Receipt Date: 20190930
  Transmission Date: 20191005
  Serious: No
  Sender: FDA-Public Use
  Company Number: DE-LUPIN PHARMACEUTICALS INC.-2019-05183

PATIENT
  Sex: Female
  Weight: 89 kg

DRUGS (3)
  1. ATORVASTATIN [Suspect]
     Active Substance: ATORVASTATIN
     Indication: ACUTE MYOCARDIAL INFARCTION
     Dosage: 10 MILLIGRAM
     Route: 065
     Dates: start: 2013
  2. ROSUVASTATIN CALCIUM. [Suspect]
     Active Substance: ROSUVASTATIN CALCIUM
     Indication: ACUTE MYOCARDIAL INFARCTION
     Dosage: 5 MILLIGRAM
     Route: 065
     Dates: start: 2019
  3. SIMVASTATIN. [Suspect]
     Active Substance: SIMVASTATIN
     Indication: ACUTE MYOCARDIAL INFARCTION
     Dosage: 20 MILLIGRAM
     Route: 065
     Dates: start: 2013

REACTIONS (1)
  - Myalgia [Recovering/Resolving]
